FAERS Safety Report 7769296-2 (Version None)
Quarter: 2011Q3

REPORT INFORMATION
  Report Type: 
  Country: None (occurrence: None)
  Receive Date: 20110920
  Receipt Date: 20110914
  Transmission Date: 20111222
  Serious: Yes (Death, Hospitalization)
  Sender: FDA-Public Use
  Company Number: CIP-2011-00724

PATIENT
  Age: 50 Year
  Sex: Female

DRUGS (2)
  1. CARBOPLATIN INJECTION WET (CARBOPLATIN) [Suspect]
     Indication: MALIGNANT PERITONEAL NEOPLASM
     Dosage: (360 MG/M2), INTRAVENOUS
     Route: 042
  2. PACLITAXEL [Concomitant]

REACTIONS (20)
  - DYSPNOEA [None]
  - NEUROTOXICITY [None]
  - MALIGNANT PERITONEAL NEOPLASM [None]
  - GENERAL PHYSICAL HEALTH DETERIORATION [None]
  - HYPOTHERMIA [None]
  - TACHYPNOEA [None]
  - HYPOTENSION [None]
  - MULTI-ORGAN FAILURE [None]
  - FLUID RETENTION [None]
  - RENAL FAILURE ACUTE [None]
  - MITOCHONDRIAL CYTOPATHY [None]
  - ASTHENIA [None]
  - CONFUSIONAL STATE [None]
  - TACHYCARDIA [None]
  - HEPATIC FAILURE [None]
  - RECURRENT CANCER [None]
  - LACTIC ACIDOSIS [None]
  - ABDOMINAL PAIN [None]
  - ASCITES [None]
  - PLATELET COUNT DECREASED [None]
